FAERS Safety Report 9440080 (Version 1)
Quarter: 2013Q3

REPORT INFORMATION
  Report Type: Spontaneous
  Country: US (occurrence: US)
  Receive Date: 20130805
  Receipt Date: 20130805
  Transmission Date: 20140515
  Serious: Yes (Hospitalization)
  Sender: FDA-Public Use
  Company Number: US-ELI_LILLY_AND_COMPANY-US201307009399

PATIENT
  Sex: Female

DRUGS (12)
  1. CYMBALTA [Suspect]
     Indication: DEPRESSION
     Dosage: 60 MG, EACH MORNING
     Route: 065
  2. CYMBALTA [Suspect]
     Indication: ANXIETY
     Dosage: 30 MG, EACH MORNING
     Route: 065
  3. ATENOLOL [Concomitant]
     Dosage: UNK, QD
     Route: 065
  4. HTZ [Concomitant]
     Indication: BLOOD PRESSURE
     Dosage: 25 MG, QD
     Route: 065
  5. ASPIRIN [Concomitant]
     Dosage: 81 MG, QD
     Route: 065
  6. TOPAMAX [Concomitant]
     Dosage: 50 MG, BID
     Route: 065
  7. AMBIEN [Concomitant]
     Dosage: 10 MG, OTHER
     Route: 065
  8. HYDROXYZINE [Concomitant]
     Dosage: 25 MG, PRN
     Route: 065
  9. TRAZODONE [Concomitant]
     Dosage: 25 MG, PRN
     Route: 065
  10. METFORMIN [Concomitant]
     Dosage: UNK, BID
     Route: 065
  11. COZAAR [Concomitant]
     Dosage: 50 MG, QD
  12. COCAINE [Concomitant]
     Dosage: UNK, UNKNOWN
     Route: 065

REACTIONS (7)
  - Heart rate irregular [Unknown]
  - Blood potassium decreased [Unknown]
  - Renal disorder [Unknown]
  - Proteinuria [Unknown]
  - Dyspnoea [Unknown]
  - Anxiety [Unknown]
  - Hypertension [Unknown]
